FAERS Safety Report 5542867-X (Version None)
Quarter: 2007Q4

REPORT INFORMATION
  Report Type: 
  Country: None (occurrence: None)
  Receive Date: 20071210
  Receipt Date: 20071130
  Transmission Date: 20080405
  Serious: Yes (Hospitalization)
  Sender: FDA-Public Use
  Company Number: BR-ABBOTT-07P-020-0426824-00

PATIENT
  Age: 45 Year
  Sex: Female
  Weight: 60 kg

DRUGS (5)
  1. HUMIRA [Suspect]
     Indication: RHEUMATOID ARTHRITIS
     Route: 058
     Dates: start: 20060601
  2. LEFLUNOMIDE [Concomitant]
     Indication: RHEUMATOID ARTHRITIS
  3. SACCHAROMYCES BOULARDII [Concomitant]
     Indication: RHEUMATOID ARTHRITIS
  4. PREDNISONE [Concomitant]
     Indication: RHEUMATOID ARTHRITIS
  5. CAPTOPRIL [Concomitant]
     Indication: HYPERTENSION

REACTIONS (6)
  - ANAEMIA [None]
  - ARTHRALGIA [None]
  - DEPRESSION [None]
  - OVARIAN DISORDER [None]
  - SPINAL DISORDER [None]
  - UTERINE DISORDER [None]
